FAERS Safety Report 8542875-0 (Version None)
Quarter: 2012Q3

REPORT INFORMATION
  Report Type: 
  Country: None (occurrence: None)
  Receive Date: 20120727
  Receipt Date: 20120724
  Transmission Date: 20120928
  Serious: Yes (Other)
  Sender: FDA-Public Use
  Company Number: DE-AMGEN-DEUSP2012046189

PATIENT
  Sex: Male

DRUGS (1)
  1. VECTIBIX [Suspect]
     Indication: NEOPLASM MALIGNANT

REACTIONS (7)
  - SUNBURN [None]
  - IMMUNE SYSTEM DISORDER [None]
  - CONFUSIONAL STATE [None]
  - WEIGHT DECREASED [None]
  - NEOPLASM PROGRESSION [None]
  - SKIN REACTION [None]
  - CONDITION AGGRAVATED [None]
